FAERS Safety Report 6760090-8 (Version None)
Quarter: 2010Q2

REPORT INFORMATION
  Report Type: 
  Country: None (occurrence: None)
  Receive Date: 20100608
  Receipt Date: 20100528
  Transmission Date: 20101027
  Serious: Yes (Hospitalization, Other)
  Sender: FDA-Public Use
  Company Number: US-SANOFI-AVENTIS-200716003US

PATIENT
  Sex: Female

DRUGS (10)
  1. TELITHROMYCIN [Suspect]
     Indication: SINUSITIS
     Dosage: DOSE AS USED: 2 TABS OF 400 MG
     Route: 048
     Dates: start: 20050805, end: 20050811
  2. TELITHROMYCIN [Suspect]
     Route: 048
     Dates: start: 20050824, end: 20050825
  3. PREDNISONE [Suspect]
     Indication: SWELLING
     Dosage: DOSE AS USED: 40,30,20 MG
     Dates: start: 20050824, end: 20050827
  4. AUGMENTIN '125' [Concomitant]
     Dosage: DOSE AS USED: UNK
  5. IBUPROFEN [Concomitant]
     Dosage: DOSE AS USED: UNK
  6. ESOMEPRAZOLE [Concomitant]
     Dosage: DOSE AS USED: UNK
  7. PRILOSEC [Concomitant]
     Dosage: DOSE AS USED: UNK
  8. FLONASE [Concomitant]
  9. GALENIC /AMOXICILLIN/CLAVULANIC ACID/ [Concomitant]
     Dates: start: 20050915
  10. IMURAN [Concomitant]
     Dosage: DOSE AS USED: UNK

REACTIONS (9)
  - ARTHRALGIA [None]
  - AUTOIMMUNE HEPATITIS [None]
  - BLOOD BILIRUBIN INCREASED [None]
  - CHOLECYSTITIS [None]
  - HEPATITIS [None]
  - HEPATOMEGALY [None]
  - LABORATORY TEST ABNORMAL [None]
  - LIVER FUNCTION TEST ABNORMAL [None]
  - POLYARTHRITIS [None]
